FAERS Safety Report 7708799-3 (Version None)
Quarter: 2011Q3

REPORT INFORMATION
  Report Type: 
  Country: None (occurrence: None)
  Receive Date: 20110819
  Receipt Date: 20110811
  Transmission Date: 20111222
  Serious: Yes (Hospitalization)
  Sender: FDA-Public Use
  Company Number: 2011NUEUSA00034

PATIENT
  Age: 45 Year
  Sex: Female

DRUGS (6)
  1. TRAZODONE HCL [Suspect]
  2. NUEDEXTA [Suspect]
     Indication: AFFECT LABILITY
     Dosage: 1 CAP, QD, ORAL
     Route: 048
     Dates: start: 20110801, end: 20110810
  3. XENAZINE [Suspect]
     Indication: HUNTINGTON'S DISEASE
     Dosage: 12.5 MG, BID/ 25 MG, BID; 12.5 MG, BID; 25 MG, BID
     Dates: start: 20110606, end: 20110628
  4. XENAZINE [Suspect]
     Indication: HUNTINGTON'S DISEASE
     Dosage: 12.5 MG, BID/ 25 MG, BID; 12.5 MG, BID; 25 MG, BID
     Dates: start: 20110810
  5. XENAZINE [Suspect]
     Indication: HUNTINGTON'S DISEASE
     Dosage: 12.5 MG, BID/ 25 MG, BID; 12.5 MG, BID; 25 MG, BID
     Dates: start: 20110801, end: 20110809
  6. XENAZINE [Suspect]
     Indication: HUNTINGTON'S DISEASE
     Dosage: 12.5 MG, BID/ 25 MG, BID; 12.5 MG, BID; 25 MG, BID
     Dates: start: 20110629, end: 20110731

REACTIONS (4)
  - MENTAL DISORDER [None]
  - AFFECT LABILITY [None]
  - ABNORMAL BEHAVIOUR [None]
  - REFUSAL OF TREATMENT BY PATIENT [None]
